FAERS Safety Report 4300270-4 (Version None)
Quarter: 2004Q1

REPORT INFORMATION
  Report Type: 
  Country: None (occurrence: None)
  Receive Date: 20040220
  Receipt Date: 20040216
  Transmission Date: 20041129
  Serious: Yes (Disabling)
  Sender: FDA-Public Use
  Company Number: WAES 0402USA01170

PATIENT
  Age: 39 Year
  Sex: Female

DRUGS (1)
  1. FOSAMAX [Suspect]
     Route: 048
     Dates: start: 20040214, end: 20040216

REACTIONS (4)
  - ARTHRALGIA [None]
  - CHEST WALL PAIN [None]
  - MUSCULAR WEAKNESS [None]
  - MYALGIA [None]
